FAERS Safety Report 8535104-5 (Version None)
Quarter: 2012Q3

REPORT INFORMATION
  Report Type: 
  Country: None (occurrence: None)
  Receive Date: 20120724
  Receipt Date: 20120717
  Transmission Date: 20120928
  Serious: Yes (Life-Threatening, Other)
  Sender: FDA-Public Use
  Company Number: RS-PFIZER INC-2012099532

PATIENT
  Age: 45 Year
  Sex: Male

DRUGS (2)
  1. SILDENAFIL CITRATE [Suspect]
     Indication: ERECTILE DYSFUNCTION
     Dosage: 25 MG, SINGLE
     Route: 048
     Dates: start: 20050718
  2. SILDENAFIL CITRATE [Suspect]
     Indication: SEXUAL DYSFUNCTION

REACTIONS (6)
  - ISCHAEMIC STROKE [None]
  - CEREBRAL INFARCTION [None]
  - HEMIANOPIA HOMONYMOUS [None]
  - HEADACHE [None]
  - ARTERIAL STENOSIS [None]
  - VISION BLURRED [None]
